FAERS Safety Report 8078436-X (Version None)
Quarter: 2012Q1

REPORT INFORMATION
  Report Type: 
  Country: None (occurrence: None)
  Receive Date: 20120127
  Receipt Date: 20120127
  Transmission Date: 20120608
  Serious: No
  Sender: FDA-Public Use
  Company Number: None

PATIENT
  Sex: Female
  Weight: 78.6 kg

DRUGS (1)
  1. PENTOXIFYLLINE [Suspect]
     Indication: PERIPHERAL ARTERIAL OCCLUSIVE DISEASE
     Dosage: 400MG 3X DAILY ORAL
     Route: 048
     Dates: start: 20120116, end: 20120117

REACTIONS (7)
  - DYSPEPSIA [None]
  - DIZZINESS [None]
  - ABDOMINAL DISCOMFORT [None]
  - INSOMNIA [None]
  - NAUSEA [None]
  - FLATULENCE [None]
  - ERUCTATION [None]
